FAERS Safety Report 20389359 (Version 1)
Quarter: 2022Q1

REPORT INFORMATION
  Report Type: Other
  Country: US (occurrence: None)
  Receive Date: 20220128
  Receipt Date: 20220128
  Transmission Date: 20220423
  Serious: Yes (Life-Threatening, Hospitalization)
  Sender: FDA-Public Use
  Company Number: US-ROCHE-3010047

PATIENT
  Age: 64 Year
  Sex: Male
  Weight: 108.96 kg

DRUGS (12)
  1. RITUXAN [Suspect]
     Active Substance: RITUXIMAB
     Indication: Non-Hodgkin^s lymphoma
     Dosage: ONGOING NO, ?3 1-WEEK EPISODES IN 2019, 3 1-WEEK EPISODES IN 2020
     Route: 042
     Dates: start: 201908, end: 2020
  2. RITUXAN [Suspect]
     Active Substance: RITUXIMAB
     Indication: Diffuse large B-cell lymphoma
  3. RITUXAN [Suspect]
     Active Substance: RITUXIMAB
     Indication: Asthma
  4. XOLAIR [Suspect]
     Active Substance: OMALIZUMAB
     Indication: Asthma
     Route: 058
  5. XOLAIR [Suspect]
     Active Substance: OMALIZUMAB
  6. XOLAIR [Suspect]
     Active Substance: OMALIZUMAB
     Indication: Hypersensitivity
  7. XOLAIR [Suspect]
     Active Substance: OMALIZUMAB
  8. LOTREL [Concomitant]
     Active Substance: AMLODIPINE BESYLATE\BENAZEPRIL HYDROCHLORIDE
     Indication: Hypertension
     Dosage: ONGOING YES
     Route: 048
     Dates: start: 1997
  9. ATENOLOL [Concomitant]
     Active Substance: ATENOLOL
     Indication: Atrial fibrillation
     Dosage: ONGOING YES, (1.5) TABLETS DAILY
     Route: 048
     Dates: start: 2019
  10. ATENOLOL [Concomitant]
     Active Substance: ATENOLOL
     Indication: Hypertension
  11. PFIZER-BIONTECH COVID-19 VACCINE [Concomitant]
     Active Substance: TOZINAMERAN
     Indication: Prophylaxis
     Dosage: ONGOING NO, 30-MAR-2021, 29-APR-2021 AND 4-NOV-2021
     Route: 030
     Dates: start: 20210330, end: 20211104
  12. ELIQUIS [Concomitant]
     Active Substance: APIXABAN
     Indication: Atrial fibrillation
     Dosage: ONGOING YES
     Route: 048
     Dates: start: 201909

REACTIONS (11)
  - Non-Hodgkin^s lymphoma [Not Recovered/Not Resolved]
  - Infection [Recovered/Resolved]
  - Atrial fibrillation [Not Recovered/Not Resolved]
  - Bone cancer [Recovered/Resolved]
  - Skin cancer [Not Recovered/Not Resolved]
  - Pain [Recovered/Resolved]
  - COVID-19 [Unknown]
  - Cough [Not Recovered/Not Resolved]
  - Thermal burn [Recovered/Resolved]
  - Pyrexia [Recovered/Resolved]
  - Asthenia [Recovered/Resolved]

NARRATIVE: CASE EVENT DATE: 20210701
